FAERS Safety Report 4353228-3 (Version None)
Quarter: 2004Q2

REPORT INFORMATION
  Report Type: 
  Country: None (occurrence: None)
  Receive Date: 20040505
  Receipt Date: 20031120
  Transmission Date: 20050107
  Serious: Yes (Death, Other)
  Sender: FDA-Public Use
  Company Number: PHNU2003DE04105

PATIENT
  Sex: Female

DRUGS (10)
  1. CLOZAPINE [Suspect]
     Indication: SCHIZOPHRENIA
     Dosage: 300MG/DAY
     Route: 048
     Dates: start: 20000101, end: 20030701
  2. CLOZAPINE [Suspect]
     Dosage: 400MG/DAY
     Route: 048
     Dates: start: 20030702, end: 20030703
  3. CLOZAPINE [Suspect]
     Dosage: 300MG/DAY
     Route: 048
     Dates: start: 20030704, end: 20030704
  4. CLOZAPINE [Suspect]
     Dosage: 150MG/DAY
     Route: 048
     Dates: start: 20030705, end: 20030705
  5. THEOPHYLLINE [Suspect]
     Indication: CHRONIC OBSTRUCTIVE AIRWAYS DISEASE
     Dosage: 400MG/DAY
     Route: 048
     Dates: start: 20030701, end: 20030704
  6. THEOPHYLLINE [Suspect]
     Dosage: 200MG/DAY
     Dates: start: 20030705, end: 20030705
  7. VERAHEXAL [Concomitant]
     Dosage: 160MG/DAY
     Route: 048
     Dates: start: 20030101, end: 20030704
  8. VERAHEXAL [Concomitant]
     Dosage: 80MG/DAY
     Route: 048
     Dates: start: 20030705, end: 20030705
  9. PULMICORT [Concomitant]
     Indication: CHRONIC OBSTRUCTIVE AIRWAYS DISEASE
     Dosage: .2 MG, TID
     Dates: start: 20030701, end: 20030704
  10. PULMICORT [Concomitant]
     Dosage: .2 MG, BID
     Dates: start: 20030705, end: 20030705

REACTIONS (26)
  - ANURIA [None]
  - AREFLEXIA [None]
  - ASPHYXIA [None]
  - ATRIAL FIBRILLATION [None]
  - BRAIN OEDEMA [None]
  - BRAIN STEM AUDITORY EVOKED RESPONSE ABNORMAL [None]
  - CARDIAC ARREST [None]
  - CARDIAC FAILURE [None]
  - CHRONIC OBSTRUCTIVE AIRWAYS DISEASE EXACERBATED [None]
  - CONFUSIONAL STATE [None]
  - DIZZINESS [None]
  - DRUG INTERACTION [None]
  - DRUG LEVEL INCREASED [None]
  - DYSPNOEA [None]
  - GAIT DISTURBANCE [None]
  - GASTRIC HAEMORRHAGE [None]
  - HAEMODYNAMIC INSTABILITY [None]
  - HYPERVENTILATION [None]
  - HYPOXIC ENCEPHALOPATHY [None]
  - INFECTION [None]
  - POSTURE ABNORMAL [None]
  - PUPIL FIXED [None]
  - RESUSCITATION [None]
  - SOMATOSENSORY EVOKED POTENTIALS ABNORMAL [None]
  - SPEECH DISORDER [None]
  - UNRESPONSIVE TO PAIN STIMULI [None]
